FAERS Safety Report 4687393-5 (Version None)
Quarter: 2005Q2

REPORT INFORMATION
  Report Type: 
  Country: None (occurrence: None)
  Receive Date: 20050608
  Receipt Date: 20050527
  Transmission Date: 20051028
  Serious: Yes (Other)
  Sender: FDA-Public Use
  Company Number: 2005072157

PATIENT
  Age: 80 Year
  Sex: Female
  Weight: 79.8331 kg

DRUGS (12)
  1. BEXTRA [Suspect]
     Indication: ARTHRITIS
     Dosage: 10 MG (10 MG, 1 IN 1 D), ORAL
     Route: 048
     Dates: start: 20041228, end: 20050107
  2. TOPROL (METOPROLOL) [Concomitant]
  3. NORVASC [Concomitant]
  4. NEXIUM [Concomitant]
  5. EVISTA [Concomitant]
  6. ATACAND [Concomitant]
  7. ZOLOFT [Concomitant]
  8. NEURONTIN [Concomitant]
  9. FUROSEMIDE [Concomitant]
  10. POTASSIUM ACETATE [Concomitant]
  11. ASPIRIN [Concomitant]
  12. K-DUR 10 [Concomitant]

REACTIONS (6)
  - CHOKING [None]
  - DRY MOUTH [None]
  - DYSPNOEA [None]
  - LOCAL SWELLING [None]
  - OEDEMA MOUTH [None]
  - SPEECH DISORDER [None]
